FAERS Safety Report 7762396 (Version 3)
Quarter: 2012Q4

REPORT INFORMATION
  Report Type: Report from Study
  Country: TW (occurrence: TW)
  Receive Date: 20110117
  Receipt Date: 20121102
  Transmission Date: 20130627
  Serious: Yes (Hospitalization, Other)
  Sender: FDA-Public Use
  Company Number: PHHO2009TW15774

PATIENT
  Age: 90 Year
  Sex: Female
  Weight: 43 kg

DRUGS (10)
  1. ALISKIREN [Suspect]
     Indication: CARDIAC FAILURE ACUTE
     Route: 048
     Dates: start: 20091128
  2. DIOVAN [Suspect]
  3. IMDUR [Suspect]
  4. FLUVASTATIN [Concomitant]
  5. METOCLOPRAMIDE [Concomitant]
  6. CAPTOPRIL [Concomitant]
     Indication: HYPERTENSION
  7. ALLOPURINOL [Concomitant]
     Indication: GOUT
  8. CARVEDILOL [Concomitant]
     Indication: CARDIAC FAILURE
  9. MOSAPRIDE [Concomitant]
  10. SENNOSIDE A+B CALCIUM [Concomitant]

REACTIONS (29)
  - Hypotension [Recovered/Resolved]
  - Sinus tachycardia [Recovered/Resolved]
  - Renal impairment [Recovered/Resolved]
  - Syncope [Recovered/Resolved]
  - Dizziness [Recovered/Resolved]
  - Fatigue [Recovered/Resolved]
  - Cardiac failure [Recovering/Resolving]
  - Cardiac failure acute [Recovering/Resolving]
  - Blood sodium increased [Recovered/Resolved]
  - Blood urea increased [Recovered/Resolved]
  - Pleural effusion [Not Recovered/Not Resolved]
  - Decreased appetite [Recovered/Resolved]
  - Dyspnoea [Recovered/Resolved]
  - Drug ineffective [Not Recovered/Not Resolved]
  - Disease progression [Not Recovered/Not Resolved]
  - Cardiac failure congestive [Recovered/Resolved]
  - Chest discomfort [Recovered/Resolved]
  - Dyspnoea paroxysmal nocturnal [Not Recovered/Not Resolved]
  - Dyspnoea exertional [Recovering/Resolving]
  - Pulmonary oedema [Recovered/Resolved]
  - Orthopnoea [Recovering/Resolving]
  - Cardiomegaly [Not Recovered/Not Resolved]
  - Lung infiltration [Not Recovered/Not Resolved]
  - Pulmonary hypertension [Not Recovered/Not Resolved]
  - Oedema [Recovered/Resolved]
  - Breath sounds abnormal [Not Recovered/Not Resolved]
  - Rales [Not Recovered/Not Resolved]
  - Pulmonary congestion [Not Recovered/Not Resolved]
  - Fluid overload [Not Recovered/Not Resolved]
